FAERS Safety Report 19445263 (Version 1)
Quarter: 2021Q2

REPORT INFORMATION
  Report Type: Spontaneous
  Country: US (occurrence: US)
  Receive Date: 20210622
  Receipt Date: 20210622
  Transmission Date: 20210717
  Serious: Yes (Other)
  Sender: FDA-Public Use
  Company Number: US-CADILA HEALTHCARE LIMITED-US-ZYDUS-066934

PATIENT

DRUGS (12)
  1. IPILIMUMAB [Concomitant]
     Active Substance: IPILIMUMAB
     Indication: PRODUCT USED FOR UNKNOWN INDICATION
     Dosage: 3 MILLIGRAM/KILOGRAM (EVERY 21 DAYS)
  2. PREDNISONE. [Concomitant]
     Active Substance: PREDNISONE
     Indication: DERMATITIS
     Dosage: 50 MILLIGRAM, QD ((0.5 MG/)
  3. MICONAZOLE [MICONAZOLE NITRATE] [Suspect]
     Active Substance: MICONAZOLE NITRATE
     Indication: DERMATITIS
     Dosage: UNK
     Route: 061
  4. BETAMETHASONE. [Suspect]
     Active Substance: BETAMETHASONE
     Indication: DERMATITIS
     Dosage: UNK
     Route: 061
  5. MICONAZOLE [MICONAZOLE NITRATE] [Suspect]
     Active Substance: MICONAZOLE NITRATE
     Indication: TINEA VERSICOLOUR
     Dosage: UNK
     Route: 061
  6. FLUCONAZOLE. [Concomitant]
     Active Substance: FLUCONAZOLE
     Dosage: 100 MILLIGRAM, QD
  7. BETAMETHASONE. [Suspect]
     Active Substance: BETAMETHASONE
     Indication: TINEA VERSICOLOUR
     Dosage: UNK
     Route: 061
  8. CETIRIZINE [Suspect]
     Active Substance: CETIRIZINE HYDROCHLORIDE
     Indication: DERMATITIS
  9. PREDNISONE. [Concomitant]
     Active Substance: PREDNISONE
     Dosage: 15 UNK
  10. PEMBROLIZUMAB. [Concomitant]
     Active Substance: PEMBROLIZUMAB
     Indication: PRODUCT USED FOR UNKNOWN INDICATION
     Dosage: 200 MILLIGRAM EVERY 21 DAYS
     Route: 065
  11. CETIRIZINE [Suspect]
     Active Substance: CETIRIZINE HYDROCHLORIDE
     Indication: PRURITUS
     Dosage: 10 MILLIGRAM, QD
     Route: 005
  12. FLUCONAZOLE. [Concomitant]
     Active Substance: FLUCONAZOLE
     Indication: DERMATITIS
     Dosage: 200 MILLIGRAM, QD

REACTIONS (2)
  - Drug ineffective [Recovered/Resolved]
  - False negative investigation result [Unknown]
